FAERS Safety Report 6635518-4 (Version None)
Quarter: 2010Q1

REPORT INFORMATION
  Report Type: 
  Country: None (occurrence: None)
  Receive Date: 20100315
  Receipt Date: 20100210
  Transmission Date: 20100710
  Serious: No
  Sender: FDA-Public Use
  Company Number: US-ABBOTT-10P-163-0626346-00

PATIENT
  Sex: Female

DRUGS (6)
  1. DEPAKOTE [Suspect]
     Indication: BIPOLAR DISORDER
     Dates: start: 20091001
  2. ELAVIL [Concomitant]
     Indication: INITIAL INSOMNIA
  3. AMBIEN CR [Concomitant]
     Indication: INITIAL INSOMNIA
  4. WELLBUTRIN XL [Concomitant]
     Indication: DEPRESSION
  5. URSO FORTE [Concomitant]
     Indication: HEPATIC STEATOSIS
     Dates: start: 20090701
  6. LOVASTATIN [Concomitant]
     Indication: BLOOD CHOLESTEROL INCREASED

REACTIONS (1)
  - ALOPECIA [None]
